FAERS Safety Report 9843593 (Version 1)
Quarter: 2013Q4

REPORT INFORMATION
  Report Type: Spontaneous
  Country: US (occurrence: None)
  Receive Date: 20131223
  Receipt Date: 20131223
  Transmission Date: 20140711
  Serious: Yes (Other)
  Sender: FDA-Public Use
  Company Number: 222043LEO

PATIENT
  Age: 68 Year
  Sex: Female

DRUGS (3)
  1. PICATO (0.015 %, GEL) [Suspect]
     Indication: PRECANCEROUS CELLS PRESENT
     Dosage: TOPICAL
     Route: 061
     Dates: start: 20130128, end: 20130128
  2. LISINOPRIL (LISINOPRIL) [Concomitant]
  3. SIMVASTATIN (SIMVASTATIN) [Concomitant]

REACTIONS (5)
  - Application site vesicles [None]
  - Application site pain [None]
  - Application site erythema [None]
  - Drug administered at inappropriate site [None]
  - Incorrect drug administration duration [None]
